FAERS Safety Report 7603688-7 (Version None)
Quarter: 2011Q3

REPORT INFORMATION
  Report Type: 
  Country: None (occurrence: None)
  Receive Date: 20110712
  Receipt Date: 20110706
  Transmission Date: 20111222
  Serious: No
  Sender: FDA-Public Use
  Company Number: US-PFIZER INC-2011127678

PATIENT
  Sex: Female
  Weight: 63.492 kg

DRUGS (2)
  1. ESTROGENS [Concomitant]
     Dosage: UNK
  2. ADVIL LIQUI-GELS [Suspect]
     Indication: HEADACHE
     Dosage: 200 MG, UNK
     Route: 048
     Dates: end: 20110501

REACTIONS (4)
  - HYPOTENSION [None]
  - NONSPECIFIC REACTION [None]
  - DIZZINESS [None]
  - HYPERHIDROSIS [None]
